FAERS Safety Report 7804759-2 (Version None)
Quarter: 2011Q4

REPORT INFORMATION
  Report Type: 
  Country: None (occurrence: None)
  Receive Date: 20111010
  Receipt Date: 20111003
  Transmission Date: 20120403
  Serious: Yes (Death, Hospitalization)
  Sender: FDA-Public Use
  Company Number: US-CELGENEUS-163-21880-11091668

PATIENT
  Sex: Male

DRUGS (21)
  1. VANCOMYCIN [Concomitant]
     Route: 041
     Dates: end: 20110912
  2. ASPIRIN [Concomitant]
     Route: 065
  3. PEPCID [Concomitant]
     Route: 065
  4. PRILOSEC [Concomitant]
     Dosage: 20 MILLIGRAM
     Route: 065
  5. REVLIMID [Suspect]
     Dosage: 25 MILLIGRAM
     Route: 048
     Dates: start: 20110408, end: 20110101
  6. VITAMIN D [Concomitant]
     Route: 065
  7. NORVASC [Concomitant]
     Dosage: 5 MILLIGRAM
     Route: 065
  8. AZOPT [Concomitant]
     Route: 047
  9. CELEXA [Concomitant]
     Dosage: 20 MILLIGRAM
     Route: 065
  10. NEURONTIN [Concomitant]
     Dosage: 300 MILLIGRAM
     Route: 065
  11. LASIX [Concomitant]
     Dosage: 20 MILLIGRAM
     Route: 065
  12. PRINIVIL [Concomitant]
     Dosage: 5 MILLIGRAM
     Route: 065
  13. TRAVATAN [Concomitant]
     Route: 065
  14. DEXAMETHASONE [Concomitant]
     Route: 065
  15. COREG [Concomitant]
     Dosage: 12.5 MILLIGRAM
     Route: 065
  16. OXYCODONE HCL [Concomitant]
     Route: 065
  17. MIRALAX [Concomitant]
     Route: 065
  18. SPIRIVA [Concomitant]
     Dosage: 250/50 PUFF
     Route: 065
  19. REVLIMID [Suspect]
     Dosage: 25 MILLIGRAM
     Route: 048
     Dates: start: 20110701, end: 20110915
  20. TYLENOL-500 [Concomitant]
     Route: 065
  21. CALCIUM GLUCONATE [Concomitant]
     Route: 065

REACTIONS (9)
  - CARDIAC FAILURE CONGESTIVE [None]
  - OSTEOMYELITIS [None]
  - JOINT SWELLING [None]
  - CHRONIC OBSTRUCTIVE PULMONARY DISEASE [None]
  - ASTHENIA [None]
  - ACTIVITIES OF DAILY LIVING IMPAIRED [None]
  - STAPHYLOCOCCAL INFECTION [None]
  - FALL [None]
  - CORONARY ARTERY DISEASE [None]
